FAERS Safety Report 15164528 (Version 4)
Quarter: 2018Q4

REPORT INFORMATION
  Report Type: Spontaneous
  Country: DE (occurrence: DE)
  Receive Date: 20180719
  Receipt Date: 20181122
  Transmission Date: 20190204
  Serious: Yes (Hospitalization, Other)
  Sender: FDA-Public Use
  Company Number: DE-AUROBINDO-AUR-APL-2018-031129

PATIENT
  Age: 68 Year
  Sex: Female
  Weight: 49 kg

DRUGS (109)
  1. OXALIPLATIN CONCENTRATE FOR SOLUTION FOR INFUSION [Suspect]
     Active Substance: OXALIPLATIN
     Dosage: 135 MILLIGRAM
     Route: 042
     Dates: start: 20170330, end: 20170330
  2. OXALIPLATIN CONCENTRATE FOR SOLUTION FOR INFUSION [Suspect]
     Active Substance: OXALIPLATIN
     Dosage: 135 MILLIGRAM
     Route: 042
     Dates: start: 20170725, end: 20170725
  3. OXALIPLATIN CONCENTRATE FOR SOLUTION FOR INFUSION [Suspect]
     Active Substance: OXALIPLATIN
     Dosage: 135 MILLIGRAM
     Route: 042
     Dates: start: 20170711, end: 20170711
  4. FOLINIC ACID [Suspect]
     Active Substance: LEUCOVORIN
     Dosage: 636 MILLIGRAM
     Route: 042
     Dates: start: 20170302, end: 20170302
  5. FOLINIC ACID [Suspect]
     Active Substance: LEUCOVORIN
     Dosage: 636 MILLIGRAM
     Route: 042
     Dates: start: 20171212, end: 20171212
  6. FOLINIC ACID [Suspect]
     Active Substance: LEUCOVORIN
     Dosage: 636 MILLIGRAM
     Route: 042
     Dates: start: 20171114, end: 20171114
  7. FLUOROURACIL. [Suspect]
     Active Substance: FLUOROURACIL
     Dosage: 636 MILLIGRAM
     Route: 042
     Dates: start: 20170627, end: 20170627
  8. FLUOROURACIL. [Suspect]
     Active Substance: FLUOROURACIL
     Dosage: 636 MILLIGRAM
     Route: 042
     Dates: start: 20171114, end: 20171114
  9. FLUOROURACIL. [Suspect]
     Active Substance: FLUOROURACIL
     Dosage: 3816 MILLIGRAM
     Route: 042
     Dates: start: 20180125, end: 20180127
  10. FLUOROURACIL. [Suspect]
     Active Substance: FLUOROURACIL
     Dosage: 3816 MILLIGRAM
     Route: 042
     Dates: start: 20171212, end: 20171214
  11. FLUOROURACIL. [Suspect]
     Active Substance: FLUOROURACIL
     Dosage: 3816 MILLIGRAM
     Route: 042
     Dates: start: 20170511, end: 20170513
  12. CLEXANE [Suspect]
     Active Substance: ENOXAPARIN SODIUM
     Indication: PRODUCT USED FOR UNKNOWN INDICATION
     Dosage: UNK
     Route: 065
  13. XARELTO [Concomitant]
     Active Substance: RIVAROXABAN
     Indication: PRODUCT USED FOR UNKNOWN INDICATION
     Dosage: UNK
     Route: 065
     Dates: start: 20170809
  14. ONDANSETRON [Concomitant]
     Active Substance: ONDANSETRON
     Indication: PRODUCT USED FOR UNKNOWN INDICATION
     Dosage: UNK
     Route: 065
     Dates: start: 20170217
  15. OXALIPLATIN CONCENTRATE FOR SOLUTION FOR INFUSION [Suspect]
     Active Substance: OXALIPLATIN
     Dosage: 135 MILLIGRAM
     Route: 042
     Dates: start: 20170511, end: 20170511
  16. FOLINIC ACID [Suspect]
     Active Substance: LEUCOVORIN
     Dosage: 636 MILLIGRAM
     Route: 042
     Dates: start: 20170316, end: 20170316
  17. FOLINIC ACID [Suspect]
     Active Substance: LEUCOVORIN
     Dosage: 636 MILLIGRAM
     Route: 042
     Dates: start: 20180322, end: 20180322
  18. FOLINIC ACID [Suspect]
     Active Substance: LEUCOVORIN
     Dosage: 636 MILLIGRAM
     Route: 042
     Dates: start: 20170427, end: 20170427
  19. FOLINIC ACID [Suspect]
     Active Substance: LEUCOVORIN
     Dosage: 636 MILLIGRAM
     Route: 042
     Dates: start: 20170413, end: 20170413
  20. FOLINIC ACID [Suspect]
     Active Substance: LEUCOVORIN
     Dosage: 636 MILLIGRAM
     Route: 042
     Dates: start: 20180405, end: 20180405
  21. FOLINIC ACID [Suspect]
     Active Substance: LEUCOVORIN
     Dosage: 636 MILLIGRAM
     Route: 042
     Dates: start: 20170613, end: 20170613
  22. FOLINIC ACID [Suspect]
     Active Substance: LEUCOVORIN
     Dosage: 636 MILLIGRAM
     Route: 042
     Dates: start: 20180125, end: 20180125
  23. FOLINIC ACID [Suspect]
     Active Substance: LEUCOVORIN
     Dosage: 636 MILLIGRAM
     Route: 042
     Dates: start: 20171017, end: 20171017
  24. FLUOROURACIL. [Suspect]
     Active Substance: FLUOROURACIL
     Dosage: 636 MILLIGRAM
     Route: 042
     Dates: start: 20171128, end: 20171128
  25. FLUOROURACIL. [Suspect]
     Active Substance: FLUOROURACIL
     Dosage: 3816 MILLIGRAM
     Route: 042
     Dates: start: 20171128, end: 20171130
  26. FLUOROURACIL. [Suspect]
     Active Substance: FLUOROURACIL
     Dosage: 636 MILLIGRAM
     Route: 042
     Dates: start: 20170613, end: 20170613
  27. FLUOROURACIL. [Suspect]
     Active Substance: FLUOROURACIL
     Dosage: 636 MILLIGRAM
     Route: 042
     Dates: start: 20171004, end: 20171004
  28. FLUOROURACIL. [Suspect]
     Active Substance: FLUOROURACIL
     Dosage: 636 MILLIGRAM
     Route: 042
     Dates: start: 20170511, end: 20170511
  29. FLUOROURACIL. [Suspect]
     Active Substance: FLUOROURACIL
     Dosage: 3816 MILLIGRAM
     Route: 042
     Dates: start: 20170413, end: 20170415
  30. MAGNESIUM [Concomitant]
     Active Substance: MAGNESIUM
     Indication: PRODUCT USED FOR UNKNOWN INDICATION
     Dosage: UNK
     Route: 065
     Dates: start: 19980101
  31. OXALIPLATIN CONCENTRATE FOR SOLUTION FOR INFUSION [Suspect]
     Active Substance: OXALIPLATIN
     Dosage: 135 MILLIGRAM
     Route: 042
     Dates: start: 20170427, end: 20170427
  32. OXALIPLATIN CONCENTRATE FOR SOLUTION FOR INFUSION [Suspect]
     Active Substance: OXALIPLATIN
     Dosage: 135 MILLIGRAM
     Route: 042
     Dates: start: 20170530, end: 20170530
  33. FOLINIC ACID [Suspect]
     Active Substance: LEUCOVORIN
     Dosage: 636 MILLIGRAM
     Route: 042
     Dates: start: 20170330, end: 20170330
  34. FOLINIC ACID [Suspect]
     Active Substance: LEUCOVORIN
     Dosage: 636 MILLIGRAM
     Route: 042
     Dates: start: 20171128, end: 20171128
  35. FLUOROURACIL. [Suspect]
     Active Substance: FLUOROURACIL
     Dosage: 3816 MILLIGRAM
     Route: 042
     Dates: start: 20180405, end: 20180407
  36. FLUOROURACIL. [Suspect]
     Active Substance: FLUOROURACIL
     Dosage: 3816 MILLIGRAM
     Route: 042
     Dates: start: 20170627, end: 20170629
  37. FLUOROURACIL. [Suspect]
     Active Substance: FLUOROURACIL
     Dosage: 3816 MILLIGRAM
     Route: 042
     Dates: start: 20180308, end: 20180310
  38. PERFALGAN [Suspect]
     Active Substance: ACETAMINOPHEN
     Indication: PRODUCT USED FOR UNKNOWN INDICATION
     Dosage: UNK
     Route: 065
  39. METOCLOPRAMID                      /00041901/ [Concomitant]
     Active Substance: METOCLOPRAMIDE
     Indication: PRODUCT USED FOR UNKNOWN INDICATION
     Dosage: UNK
     Route: 065
     Dates: start: 20180110
  40. NEUROTRAT B12 [Concomitant]
     Indication: PRODUCT USED FOR UNKNOWN INDICATION
     Dosage: UNK
     Route: 065
     Dates: start: 20180125
  41. MOVICOL [Concomitant]
     Active Substance: POLYETHYLENE GLYCOL 3350\POTASSIUM CHLORIDE\SODIUM BICARBONATE\SODIUM CHLORIDE
     Indication: PRODUCT USED FOR UNKNOWN INDICATION
     Dosage: UNK
     Route: 065
     Dates: start: 2007
  42. OXALIPLATIN CONCENTRATE FOR SOLUTION FOR INFUSION [Suspect]
     Active Substance: OXALIPLATIN
     Indication: ADENOCARCINOMA GASTRIC
     Dosage: 135 MILLIGRAM
     Route: 042
     Dates: start: 20170302, end: 20170302
  43. FOLINIC ACID [Suspect]
     Active Substance: LEUCOVORIN
     Dosage: 636 MILLIGRAM
     Route: 042
     Dates: start: 20180308, end: 20180308
  44. FOLINIC ACID [Suspect]
     Active Substance: LEUCOVORIN
     Dosage: 636 MILLIGRAM
     Route: 042
     Dates: start: 20171004, end: 20171004
  45. FOLINIC ACID [Suspect]
     Active Substance: LEUCOVORIN
     Dosage: 636 MILLIGRAM
     Route: 042
     Dates: start: 20170530, end: 20170530
  46. FOLINIC ACID [Suspect]
     Active Substance: LEUCOVORIN
     Dosage: 636 MILLIGRAM
     Route: 042
     Dates: start: 20171101, end: 20171101
  47. FLUOROURACIL. [Suspect]
     Active Substance: FLUOROURACIL
     Dosage: 636 MILLIGRAM
     Route: 042
     Dates: start: 20170302, end: 20170302
  48. FLUOROURACIL. [Suspect]
     Active Substance: FLUOROURACIL
     Dosage: 3816 MG, UNK
     Route: 042
     Dates: start: 20180208, end: 20180210
  49. FLUOROURACIL. [Suspect]
     Active Substance: FLUOROURACIL
     Dosage: 3816 MILLIGRAM
     Route: 042
     Dates: start: 20171114, end: 20171116
  50. FLUOROURACIL. [Suspect]
     Active Substance: FLUOROURACIL
     Dosage: 3816 MILLIGRAM
     Route: 042
     Dates: start: 20171101, end: 20171103
  51. FLUOROURACIL. [Suspect]
     Active Substance: FLUOROURACIL
     Dosage: 3816 MILLIGRAM
     Route: 042
     Dates: start: 20170330, end: 20170401
  52. FLUOROURACIL. [Suspect]
     Active Substance: FLUOROURACIL
     Dosage: 3816 MILLIGRAM
     Route: 042
     Dates: start: 20171004, end: 20171006
  53. FLUOROURACIL. [Suspect]
     Active Substance: FLUOROURACIL
     Dosage: 636 MILLIGRAM
     Route: 042
     Dates: start: 20170530, end: 20170530
  54. FLUOROURACIL. [Suspect]
     Active Substance: FLUOROURACIL
     Dosage: 636 MILLIGRAM
     Route: 042
     Dates: start: 20170302, end: 20170302
  55. FLUOROURACIL. [Suspect]
     Active Substance: FLUOROURACIL
     Dosage: 636 MILLIGRAM
     Route: 042
     Dates: start: 20180405, end: 20180405
  56. FLUOROURACIL. [Suspect]
     Active Substance: FLUOROURACIL
     Dosage: 636 MILLIGRAM
     Route: 042
     Dates: start: 20170919, end: 20170919
  57. FLUOROURACIL. [Suspect]
     Active Substance: FLUOROURACIL
     Dosage: 636 MILLIGRAM
     Route: 042
     Dates: start: 20170822, end: 20170822
  58. RINGERS SOLUTION [Concomitant]
     Active Substance: CALCIUM CHLORIDE\POTASSIUM CHLORIDE\SODIUM CHLORIDE
     Indication: PRODUCT USED FOR UNKNOWN INDICATION
     Dosage: UNK
     Route: 065
     Dates: start: 20180406, end: 20180406
  59. OXALIPLATIN CONCENTRATE FOR SOLUTION FOR INFUSION [Suspect]
     Active Substance: OXALIPLATIN
     Dosage: 135 MILLIGRAM
     Route: 042
     Dates: start: 20170316, end: 20170316
  60. FOLINIC ACID [Suspect]
     Active Substance: LEUCOVORIN
     Dosage: 636 MILLIGRAM
     Route: 042
     Dates: start: 20170627, end: 20170627
  61. FOLINIC ACID [Suspect]
     Active Substance: LEUCOVORIN
     Dosage: 636 MILLIGRAM
     Route: 042
     Dates: start: 20170711, end: 20170711
  62. FOLINIC ACID [Suspect]
     Active Substance: LEUCOVORIN
     Dosage: 636 MILLIGRAM
     Route: 042
     Dates: start: 20170822, end: 20170822
  63. FLUOROURACIL. [Suspect]
     Active Substance: FLUOROURACIL
     Dosage: 636 MILLIGRAM
     Route: 042
     Dates: start: 20171017, end: 20171017
  64. FLUOROURACIL. [Suspect]
     Active Substance: FLUOROURACIL
     Dosage: 3816 MILLIGRAM
     Route: 042
     Dates: start: 20170530, end: 20170601
  65. FLUOROURACIL. [Suspect]
     Active Substance: FLUOROURACIL
     Dosage: 636 MILLIGRAM
     Route: 042
     Dates: start: 20180222, end: 20180222
  66. FLUOROURACIL. [Suspect]
     Active Substance: FLUOROURACIL
     Dosage: 636 MILLIGRAM
     Route: 042
     Dates: start: 20170427, end: 20170427
  67. FLUOROURACIL. [Suspect]
     Active Substance: FLUOROURACIL
     Dosage: 3816 MILLIGRAM
     Route: 042
     Dates: start: 20171017, end: 20171019
  68. FLUOROURACIL. [Suspect]
     Active Substance: FLUOROURACIL
     Dosage: 636 MILLIGRAM
     Route: 042
     Dates: start: 20170330, end: 20170330
  69. FLUOROURACIL. [Suspect]
     Active Substance: FLUOROURACIL
     Dosage: 3816 MILLIGRAM
     Route: 042
     Dates: start: 20170808, end: 20170810
  70. FLUOROURACIL. [Suspect]
     Active Substance: FLUOROURACIL
     Dosage: UNK
     Route: 042
     Dates: start: 20170711, end: 20170711
  71. NOVAMINSULFON [Suspect]
     Active Substance: METAMIZOLE
     Indication: ABDOMINAL PAIN UPPER
     Dosage: UNK
     Route: 042
     Dates: start: 20180109
  72. PANTOPRAZOLE [Concomitant]
     Active Substance: PANTOPRAZOLE
     Indication: PRODUCT USED FOR UNKNOWN INDICATION
     Dosage: UNK
     Route: 065
     Dates: start: 20170215
  73. CERNEVIT [Concomitant]
     Active Substance: VITAMINS
     Indication: PRODUCT USED FOR UNKNOWN INDICATION
     Dosage: UNK
     Route: 065
     Dates: start: 20180406, end: 20180406
  74. LAXANS                             /00064401/ [Concomitant]
     Indication: PRODUCT USED FOR UNKNOWN INDICATION
     Dosage: UNK
     Route: 065
  75. OXALIPLATIN CONCENTRATE FOR SOLUTION FOR INFUSION [Suspect]
     Active Substance: OXALIPLATIN
     Dosage: 135 MILLIGRAM
     Route: 042
     Dates: start: 20170613, end: 20170613
  76. OXALIPLATIN CONCENTRATE FOR SOLUTION FOR INFUSION [Suspect]
     Active Substance: OXALIPLATIN
     Dosage: 135 MILLIGRAM
     Route: 042
     Dates: start: 20170627, end: 20170627
  77. FOLINIC ACID [Suspect]
     Active Substance: LEUCOVORIN
     Dosage: 636 MILLIGRAM
     Route: 042
     Dates: start: 20170808, end: 20170808
  78. FLUOROURACIL. [Suspect]
     Active Substance: FLUOROURACIL
     Dosage: 3816 MILLIGRAM
     Route: 042
     Dates: start: 20180322, end: 20180324
  79. FLUOROURACIL. [Suspect]
     Active Substance: FLUOROURACIL
     Dosage: 3816 MILLIGRAM
     Route: 042
     Dates: start: 20170427, end: 20170429
  80. FLUOROURACIL. [Suspect]
     Active Substance: FLUOROURACIL
     Dosage: 636 MILLIGRAM
     Route: 042
     Dates: start: 20170413, end: 20170413
  81. LYRICA [Concomitant]
     Active Substance: PREGABALIN
     Indication: PRODUCT USED FOR UNKNOWN INDICATION
     Dosage: UNK
     Route: 065
     Dates: start: 20180110
  82. CENTRUM A TO ZINC [Concomitant]
     Indication: PRODUCT USED FOR UNKNOWN INDICATION
     Dosage: UNK
     Route: 065
     Dates: start: 20180105
  83. SYMBICORT [Concomitant]
     Active Substance: BUDESONIDE\FORMOTEROL FUMARATE DIHYDRATE
     Indication: PRODUCT USED FOR UNKNOWN INDICATION
     Dosage: UNK
     Route: 065
     Dates: start: 20170511
  84. FOLINIC ACID [Suspect]
     Active Substance: LEUCOVORIN
     Dosage: 636 MILLIGRAM
     Route: 042
     Dates: start: 20170511, end: 20170511
  85. FOLINIC ACID [Suspect]
     Active Substance: LEUCOVORIN
     Dosage: 636 MILLIGRAM
     Route: 042
     Dates: start: 20180222, end: 20180222
  86. DICLOFENAC [Suspect]
     Active Substance: DICLOFENAC
     Indication: PRODUCT USED FOR UNKNOWN INDICATION
     Dosage: UNK
     Route: 065
     Dates: end: 20170424
  87. FLUOROURACIL. [Suspect]
     Active Substance: FLUOROURACIL
     Dosage: 636 MILLIGRAM
     Route: 042
     Dates: start: 20170316, end: 20170316
  88. FLUOROURACIL. [Suspect]
     Active Substance: FLUOROURACIL
     Dosage: 636 MILLIGRAM
     Route: 042
     Dates: start: 20170808, end: 20170808
  89. FLUOROURACIL. [Suspect]
     Active Substance: FLUOROURACIL
     Dosage: 3816 MG, UNK
     Route: 042
     Dates: start: 20180222, end: 20180224
  90. FLUOROURACIL. [Suspect]
     Active Substance: FLUOROURACIL
     Dosage: 3816 MILLIGRAM
     Route: 042
     Dates: start: 20170822, end: 20170824
  91. DUROGESIC SMAT [Concomitant]
     Active Substance: FENTANYL
     Indication: PRODUCT USED FOR UNKNOWN INDICATION
     Dosage: UNK
     Route: 065
     Dates: start: 20170221
  92. INNOHEP [Concomitant]
     Active Substance: TINZAPARIN SODIUM
     Indication: PRODUCT USED FOR UNKNOWN INDICATION
     Dosage: UNK
     Route: 065
     Dates: start: 20170424
  93. FENTANYL. [Concomitant]
     Active Substance: FENTANYL
     Indication: PRODUCT USED FOR UNKNOWN INDICATION
     Dosage: UNK
     Route: 065
     Dates: start: 20170227
  94. KREON [Concomitant]
     Active Substance: PANCRELIPASE
     Indication: PRODUCT USED FOR UNKNOWN INDICATION
     Dosage: UNK
     Route: 065
     Dates: start: 20150603
  95. OXALIPLATIN CONCENTRATE FOR SOLUTION FOR INFUSION [Suspect]
     Active Substance: OXALIPLATIN
     Dosage: 135 MILLIGRAM
     Route: 042
     Dates: start: 20170413, end: 20170413
  96. FOLINIC ACID [Suspect]
     Active Substance: LEUCOVORIN
     Indication: ADENOCARCINOMA GASTRIC
     Dosage: 636 MILLIGRAM
     Route: 042
     Dates: start: 20180208, end: 20180208
  97. FOLINIC ACID [Suspect]
     Active Substance: LEUCOVORIN
     Dosage: 636 MILLIGRAM
     Route: 042
     Dates: start: 20170919, end: 20170919
  98. FOLINIC ACID [Suspect]
     Active Substance: LEUCOVORIN
     Dosage: 636 MILLIGRAM
     Route: 042
     Dates: start: 20170725, end: 20170725
  99. FLUOROURACIL. [Suspect]
     Active Substance: FLUOROURACIL
     Indication: ADENOCARCINOMA GASTRIC
     Dosage: 3816 MILLIGRAM
     Route: 042
     Dates: start: 20170919, end: 20170921
  100. FLUOROURACIL. [Suspect]
     Active Substance: FLUOROURACIL
     Dosage: 636 MILLIGRAM
     Route: 042
     Dates: start: 20170725, end: 20170725
  101. FLUOROURACIL. [Suspect]
     Active Substance: FLUOROURACIL
     Dosage: 3816 MILLIGRAM
     Route: 042
     Dates: start: 20170711, end: 20170713
  102. FLUOROURACIL. [Suspect]
     Active Substance: FLUOROURACIL
     Dosage: 3816 MILLIGRAM
     Route: 042
     Dates: start: 20170613, end: 20170615
  103. FLUOROURACIL. [Suspect]
     Active Substance: FLUOROURACIL
     Dosage: 3816 MILLIGRAM
     Route: 042
     Dates: start: 20170725, end: 20170727
  104. FLUOROURACIL. [Suspect]
     Active Substance: FLUOROURACIL
     Dosage: 3816 MILLIGRAM
     Route: 042
     Dates: start: 20170302, end: 20170304
  105. FLUOROURACIL. [Suspect]
     Active Substance: FLUOROURACIL
     Dosage: 636 MILLIGRAM
     Route: 042
     Dates: start: 20171101, end: 20171101
  106. FLUOROURACIL. [Suspect]
     Active Substance: FLUOROURACIL
     Dosage: 636 MILLIGRAM
     Route: 042
     Dates: start: 20171104, end: 20171104
  107. FLUOROURACIL. [Suspect]
     Active Substance: FLUOROURACIL
     Dosage: 3816 MILLIGRAM
     Route: 042
     Dates: start: 20170316, end: 20170318
  108. TRAMAL [Suspect]
     Active Substance: TRAMADOL
     Indication: PRODUCT USED FOR UNKNOWN INDICATION
     Dosage: UNK
     Route: 065
  109. ADDEL N                            /01412701/ [Concomitant]
     Active Substance: ELECTROLYTES NOS\MINERALS
     Indication: PRODUCT USED FOR UNKNOWN INDICATION
     Dosage: UNK
     Route: 065
     Dates: start: 20180406, end: 20180406

REACTIONS (1)
  - Hip fracture [Recovered/Resolved]

NARRATIVE: CASE EVENT DATE: 20180506
